FAERS Safety Report 5978226-5 (Version None)
Quarter: 2008Q4

REPORT INFORMATION
  Report Type: 
  Country: None (occurrence: None)
  Receive Date: 20081204
  Receipt Date: 20081121
  Transmission Date: 20090506
  Serious: Yes (Life-Threatening, Hospitalization)
  Sender: FDA-Public Use
  Company Number: JP-SANOFI-SYNTHELABO-A01200810952

PATIENT
  Sex: Female

DRUGS (21)
  1. ACTOS [Concomitant]
     Indication: DIABETES MELLITUS
     Dosage: UNK
     Route: 065
     Dates: end: 20080904
  2. VASELINE [Concomitant]
     Indication: DRUG USE FOR UNKNOWN INDICATION
     Dosage: UNK
     Route: 065
  3. CEFAMEZINE [Suspect]
     Indication: DRUG USE FOR UNKNOWN INDICATION
     Dosage: UNK
     Route: 065
  4. CEFDINIR [Concomitant]
     Indication: DRUG USE FOR UNKNOWN INDICATION
     Dosage: UNK
     Route: 065
     Dates: end: 20080901
  5. MUCOSTA [Concomitant]
     Indication: GASTRIC ULCER
     Route: 065
     Dates: start: 20080826, end: 20080905
  6. FLOMOX [Concomitant]
     Indication: CATHETER PLACEMENT
     Route: 065
     Dates: start: 20080827, end: 20080831
  7. OLMETEC [Concomitant]
     Indication: HYPERTENSION
     Route: 065
     Dates: start: 20080827, end: 20080904
  8. IOPAMIDOL [Suspect]
     Indication: DRUG USE FOR UNKNOWN INDICATION
     Dosage: UNK
     Route: 065
     Dates: start: 20080820
  9. MEVALOTIN [Concomitant]
     Indication: HYPERLIPIDAEMIA
     Dosage: UNK
     Route: 065
     Dates: start: 20080827, end: 20080904
  10. TAKEPRON [Suspect]
     Indication: GASTRIC ULCER
     Dosage: UNK
     Route: 065
     Dates: start: 20080827, end: 20080905
  11. MILMAG [Concomitant]
     Indication: CONSTIPATION
     Route: 065
     Dates: start: 20080826, end: 20080904
  12. SIGMART [Concomitant]
     Indication: ANGINA PECTORIS
     Route: 065
     Dates: end: 20080904
  13. ARTIST [Suspect]
     Indication: HYPERTENSION
     Route: 065
     Dates: start: 20080827, end: 20080901
  14. GLYCORAN [Concomitant]
     Indication: DIABETES MELLITUS
     Dosage: UNK
     Route: 065
     Dates: start: 20080829, end: 20080901
  15. ASPIRIN [Suspect]
     Indication: MYOCARDIAL INFARCTION
     Route: 048
     Dates: start: 20080826, end: 20080905
  16. TICLOPIDINE HCL [Suspect]
     Indication: PERCUTANEOUS CORONARY INTERVENTION
     Dosage: UNK
     Route: 065
     Dates: end: 20080904
  17. TICLOPIDINE HCL [Suspect]
     Indication: STENT PLACEMENT
     Dosage: UNK
     Route: 065
     Dates: end: 20080904
  18. TICLOPIDINE HCL [Suspect]
     Indication: THROMBOSIS PROPHYLAXIS
     Dosage: UNK
     Route: 065
     Dates: end: 20080904
  19. PLAVIX [Suspect]
     Indication: PERCUTANEOUS CORONARY INTERVENTION
     Route: 048
     Dates: start: 20080905, end: 20080905
  20. PLAVIX [Suspect]
     Indication: STENT PLACEMENT
     Route: 048
     Dates: start: 20080905, end: 20080905
  21. PLAVIX [Suspect]
     Indication: THROMBOSIS PROPHYLAXIS
     Route: 048
     Dates: start: 20080905, end: 20080905

REACTIONS (2)
  - ACUTE GENERALISED EXANTHEMATOUS PUSTULOSIS [None]
  - RENAL FAILURE [None]
